FAERS Safety Report 16778723 (Version 4)
Quarter: 2020Q2

REPORT INFORMATION
  Report Type: Report from Study
  Country: US (occurrence: US)
  Receive Date: 20190906
  Receipt Date: 20200507
  Transmission Date: 20200713
  Serious: Yes (Life-Threatening, Hospitalization, Other)
  Sender: FDA-Public Use
  Company Number: US-ROCHE-2369659

PATIENT
  Age: 73 Year
  Sex: Male

DRUGS (7)
  1. ATEZOLIZUMAB. [Suspect]
     Active Substance: ATEZOLIZUMAB
     Indication: NON-SMALL CELL LUNG CANCER
  2. PACLITAXEL. [Suspect]
     Active Substance: PACLITAXEL
     Indication: NEOPLASM MALIGNANT
  3. CARBOPLATIN. [Suspect]
     Active Substance: CARBOPLATIN
     Indication: NON-SMALL CELL LUNG CANCER
     Dosage: AUC = 2  WEEKLY X 6 WEEKS ?ON 24/JUL/2019, HE RECEIVED MOST RECENT DOSE OF CARBOPLATIN 900 MG
     Route: 042
     Dates: start: 20190520
  4. CARBOPLATIN. [Suspect]
     Active Substance: CARBOPLATIN
     Indication: NEOPLASM MALIGNANT
  5. NEULASTA [Concomitant]
     Active Substance: PEGFILGRASTIM
  6. ATEZOLIZUMAB. [Suspect]
     Active Substance: ATEZOLIZUMAB
     Indication: NEOPLASM MALIGNANT
     Dosage: INITIAL DOSE- 1200 MG IV Q 21 DAYS X 4 CYCLES?24/APR/2019, HE RECEIVED MOST RECENT DOSE OF ATEZOLIZU
     Route: 042
     Dates: start: 20190220
  7. PACLITAXEL. [Suspect]
     Active Substance: PACLITAXEL
     Indication: NON-SMALL CELL LUNG CANCER
     Dosage: INITIAL DOSE- 50 MG/M2 IV WEEKLY X 6 WEEKS ?ON 24/JUL/2019, HE RECEIVED MOST RECENT DOSE OF PACLITAX
     Route: 042
     Dates: start: 20190520

REACTIONS (2)
  - Febrile neutropenia [Recovered/Resolved]
  - Pancytopenia [Unknown]

NARRATIVE: CASE EVENT DATE: 20190729
